FAERS Safety Report 8473457-7 (Version None)
Quarter: 2012Q2

REPORT INFORMATION
  Report Type: 
  Country: None (occurrence: None)
  Receive Date: 20120625
  Receipt Date: 20120625
  Transmission Date: 20120825
  Serious: No
  Sender: FDA-Public Use
  Company Number: None

PATIENT
  Age: 78 Year
  Sex: Female

DRUGS (1)
  1. VITAMIN B-12 [Suspect]
     Indication: ABDOMINAL DISCOMFORT
     Route: 062
     Dates: start: 20120401, end: 20120611

REACTIONS (8)
  - APPLICATION SITE MASS [None]
  - NAUSEA [None]
  - VOMITING [None]
  - INCORRECT DRUG ADMINISTRATION DURATION [None]
  - DIARRHOEA [None]
  - WHITE BLOOD CELL COUNT INCREASED [None]
  - NECK PAIN [None]
  - MALAISE [None]
